FAERS Safety Report 8395932-6 (Version None)
Quarter: 2012Q2

REPORT INFORMATION
  Report Type: 
  Country: None (occurrence: None)
  Receive Date: 20120530
  Receipt Date: 20120525
  Transmission Date: 20120825
  Serious: Yes (Other)
  Sender: FDA-Public Use
  Company Number: PHEH2012US010811

PATIENT
  Sex: Female

DRUGS (5)
  1. VITAMIN C [Concomitant]
  2. TOPAMAX [Concomitant]
  3. ECHINACEA [Concomitant]
  4. AMITRIPTYLINE HCL [Concomitant]
  5. GILENYA [Suspect]
     Dosage: 0.5 MG, QD
     Route: 048

REACTIONS (2)
  - SUICIDAL IDEATION [None]
  - DEPRESSION [None]
